FAERS Safety Report 14394976 (Version 1)
Quarter: 2018Q1

REPORT INFORMATION
  Report Type: Spontaneous
  Country: JP (occurrence: JP)
  Receive Date: 20180116
  Receipt Date: 20180116
  Transmission Date: 20180509
  Serious: Yes (Hospitalization, Other)
  Sender: FDA-Public Use
  Company Number: JP-GE HEALTHCARE-VISP-PR-1405S-0247

PATIENT
  Age: 62 Year
  Sex: Female
  Weight: 47 kg

DRUGS (5)
  1. TAKEPRON [Concomitant]
     Active Substance: LANSOPRAZOLE
     Dosage: ,
     Dates: start: 20130813
  2. PLAVIX [Concomitant]
     Active Substance: CLOPIDOGREL BISULFATE
     Dosage: ,
     Dates: start: 20130813
  3. PLETAAL [Concomitant]
     Active Substance: CILOSTAZOL
     Dosage: ,
     Dates: start: 20130813, end: 20130830
  4. VISIPAQUE [Suspect]
     Active Substance: IODIXANOL
     Indication: INTRACRANIAL ANEURYSM
     Dosage: 210 ML, SINGLE
     Route: 013
     Dates: start: 20130830, end: 20130830
  5. ASPIRIN. [Concomitant]
     Active Substance: ASPIRIN
     Dosage: ,
     Dates: start: 20130813

REACTIONS (2)
  - Contrast encephalopathy [Recovered/Resolved]
  - Seizure [Recovered/Resolved]

NARRATIVE: CASE EVENT DATE: 20130830
